FAERS Safety Report 6993247-1 (Version None)
Quarter: 2010Q3

REPORT INFORMATION
  Report Type: 
  Country: None (occurrence: None)
  Receive Date: 20100917
  Receipt Date: 20100218
  Transmission Date: 20110219
  Serious: No
  Sender: FDA-Public Use
  Company Number: US-ASTRAZENECA-2009UW20440

PATIENT
  Age: 51 Year
  Sex: Female
  Weight: 83.9 kg

DRUGS (13)
  1. SEROQUEL [Suspect]
     Indication: SCHIZOAFFECTIVE DISORDER
     Route: 048
     Dates: start: 20030201, end: 20060725
  2. SEROQUEL [Suspect]
     Indication: DEPRESSION
     Route: 048
     Dates: start: 20030201, end: 20060725
  3. CLOZARIL [Concomitant]
     Dates: start: 20070101
  4. HALDOL [Concomitant]
  5. RISPERDAL [Concomitant]
     Indication: DEPRESSION
     Dates: start: 20010101, end: 20020101
  6. THORAZINE [Concomitant]
  7. ZYPREXA [Concomitant]
     Indication: DEPRESSION
     Dates: start: 20000101, end: 20070101
  8. SYMBYAX [Concomitant]
  9. KLONOPIN [Concomitant]
     Indication: DEPRESSION
     Dates: start: 20020101
  10. ZOLOFT [Concomitant]
     Dates: start: 20000101, end: 20070101
  11. BUSPAR [Concomitant]
  12. DEPAKOTE [Concomitant]
     Indication: DEPRESSION
     Dates: start: 20050101
  13. XANAX [Concomitant]
     Indication: DEPRESSION
     Dates: start: 20000101, end: 20010101

REACTIONS (5)
  - DRUG INEFFECTIVE [None]
  - OBESITY [None]
  - TYPE 2 DIABETES MELLITUS [None]
  - VISION BLURRED [None]
  - WEIGHT INCREASED [None]
